FAERS Safety Report 12695450 (Version 2)
Quarter: 2016Q3

REPORT INFORMATION
  Report Type: Spontaneous
  Country: BR (occurrence: BR)
  Receive Date: 20160829
  Receipt Date: 20160919
  Transmission Date: 20161109
  Serious: Yes (Other)
  Sender: FDA-Public Use
  Company Number: BR-JNJFOC-20160822924

PATIENT
  Sex: Female

DRUGS (1)
  1. ORTHO EVRA [Suspect]
     Active Substance: ETHINYL ESTRADIOL\NORELGESTROMIN
     Indication: CONTRACEPTION
     Route: 062

REACTIONS (9)
  - Chromaturia [Unknown]
  - Renal disorder [Unknown]
  - Skin disorder [Unknown]
  - Product adhesion issue [Unknown]
  - Polydipsia [Unknown]
  - Ephelides [Unknown]
  - Medication error [Unknown]
  - Application site reaction [Unknown]
  - Acne [Unknown]

NARRATIVE: CASE EVENT DATE: 2016
